FAERS Safety Report 7646888-2 (Version None)
Quarter: 2011Q3

REPORT INFORMATION
  Report Type: 
  Country: None (occurrence: None)
  Receive Date: 20110801
  Receipt Date: 20110722
  Transmission Date: 20111222
  Serious: Yes (Death, Other)
  Sender: FDA-Public Use
  Company Number: US-BAYER-201041823NA

PATIENT
  Age: 81 Year
  Sex: Male
  Weight: 109 kg

DRUGS (22)
  1. SUFENTA PRESERVATIVE FREE [Concomitant]
     Dosage: UNK
     Dates: start: 20060824
  2. PAVULON [Concomitant]
     Dosage: UNK
     Dates: start: 20060824
  3. PROTAMINE [Concomitant]
     Dosage: 100 MG, UNK
     Dates: start: 20060824
  4. ACETYLSALICYLIC ACID SRT [Concomitant]
  5. ETOMIDATE [Concomitant]
     Dosage: UNK
     Dates: start: 20060824
  6. PROTAMINE [Concomitant]
     Dosage: 350 MG, UNK
     Dates: start: 20060824
  7. LASIX [Concomitant]
  8. VASOTEC [Concomitant]
  9. LISINOPRIL [Concomitant]
  10. CEFUROXIME [Concomitant]
     Dosage: 1.5 G, UNK
     Dates: start: 20060824
  11. ATORVASTATIN [Concomitant]
  12. VERSED [Concomitant]
     Dosage: UNK
     Dates: start: 20060824
  13. PHENYLEPHRINE HCL [Concomitant]
     Dosage: UNK
     Dates: start: 20060824
  14. ZOCOR [Concomitant]
  15. NITROGLYCERIN [Concomitant]
  16. CONTRAST MEDIA [Concomitant]
     Indication: CATHETERISATION CARDIAC
     Dosage: UNK
     Dates: start: 20060803
  17. TRASYLOL [Suspect]
     Indication: CORONARY ARTERY BYPASS
     Dosage: 1 ML, ONCE
     Route: 042
     Dates: start: 20060824, end: 20060824
  18. ACTOS [Concomitant]
  19. TRASYLOL [Suspect]
     Dosage: 200 ML, LOADING DOSE
     Route: 042
     Dates: start: 20060824, end: 20060824
  20. PLAVIX [Concomitant]
  21. COREG [Concomitant]
  22. SUCCINYLCHOLINE CHLORIDE [Concomitant]
     Dosage: UNK
     Dates: start: 20060824

REACTIONS (14)
  - ATRIAL FIBRILLATION [None]
  - URINARY TRACT INFECTION [None]
  - DEATH [None]
  - ANXIETY [None]
  - EMOTIONAL DISTRESS [None]
  - UNEVALUABLE EVENT [None]
  - PAIN [None]
  - RENAL FAILURE [None]
  - RENAL IMPAIRMENT [None]
  - FEAR [None]
  - INJURY [None]
  - MULTI-ORGAN FAILURE [None]
  - RENAL INJURY [None]
  - STRESS [None]
